FAERS Safety Report 7372392-5 (Version None)
Quarter: 2011Q1

REPORT INFORMATION
  Report Type: 
  Country: None (occurrence: None)
  Receive Date: 20110324
  Receipt Date: 20110315
  Transmission Date: 20110831
  Serious: Yes (Hospitalization, Other)
  Sender: FDA-Public Use
  Company Number: US-JNJFOC-20090302310

PATIENT
  Sex: Female
  Weight: 71.67 kg

DRUGS (8)
  1. CHANTIX [Suspect]
     Indication: SMOKING CESSATION THERAPY
     Route: 048
  2. LIPITOR [Suspect]
     Indication: BLOOD CHOLESTEROL INCREASED
     Route: 048
  3. VICODIN [Concomitant]
     Indication: BREAKTHROUGH PAIN
     Dosage: 10/400 TABLET 2 IN 24 HOURS AS NEEDED
     Route: 048
  4. EFFEXOR [Concomitant]
     Indication: DEPRESSION
     Route: 048
  5. VALIUM [Concomitant]
     Indication: MUSCLE SPASMS
     Route: 048
  6. DURAGESIC-50 [Suspect]
     Route: 062
  7. DURAGESIC-50 [Suspect]
     Indication: BACK PAIN
     Dosage: 5X 100MCG PATCHES +1 50 MCG PATCH EVERY 72 HOURS
     Route: 062
  8. DURAGESIC-50 [Suspect]
     Dosage: 100MCG+100MCG+100MCG+100MCG+100MCG/1 EVERY 72 HOURS/TD
     Route: 062

REACTIONS (11)
  - RHABDOMYOLYSIS [None]
  - ARTERIAL INJURY [None]
  - FIBULA FRACTURE [None]
  - INAPPROPRIATE SCHEDULE OF DRUG ADMINISTRATION [None]
  - BLOOD CHOLESTEROL INCREASED [None]
  - NONSPECIFIC REACTION [None]
  - WITHDRAWAL SYNDROME [None]
  - LOWER LIMB FRACTURE [None]
  - TIBIA FRACTURE [None]
  - DRUG DOSE OMISSION [None]
  - FALL [None]
